FAERS Safety Report 12487604 (Version 1)
Quarter: 2016Q2

REPORT INFORMATION
  Report Type: Report from Study
  Country: US (occurrence: US)
  Receive Date: 20160622
  Receipt Date: 20160622
  Transmission Date: 20160815
  Serious: No
  Sender: FDA-Public Use
  Company Number: PHEH2016US015449

PATIENT
  Age: 29 Year
  Sex: Male

DRUGS (1)
  1. AFINITOR [Suspect]
     Active Substance: EVEROLIMUS
     Indication: PRODUCT USED FOR UNKNOWN INDICATION
     Dosage: 5 MG, QD (ONCE DAILY)
     Route: 048
     Dates: start: 20160105

REACTIONS (1)
  - Lip swelling [Recovering/Resolving]

NARRATIVE: CASE EVENT DATE: 20160609
